FAERS Safety Report 4386197-0 (Version None)
Quarter: 2004Q2

REPORT INFORMATION
  Report Type: 
  Country: None (occurrence: None)
  Receive Date: 20040628
  Receipt Date: 20040628
  Transmission Date: 20050107
  Serious: Yes (Hospitalization)
  Sender: FDA-Public Use
  Company Number: None

PATIENT
  Age: 25 Year
  Sex: Male

DRUGS (7)
  1. LITHIUM CARBONATE [Suspect]
     Indication: BIPOLAR DISORDER
     Dosage: 450 MG Q AM, 900 MG Q PM
     Dates: start: 20040601, end: 20040608
  2. LITHIUM CARBONATE [Suspect]
     Indication: BIPOLAR DISORDER
     Dosage: 450 MG Q AM, 900 MG Q PM
     Dates: start: 20040614, end: 20040615
  3. DEPAKOTE [Concomitant]
  4. LOVENOX [Concomitant]
  5. ZYPREXA [Concomitant]
  6. CLONIDINE HCL [Concomitant]
  7. DOSS [Concomitant]

REACTIONS (3)
  - DEHYDRATION [None]
  - MENTAL IMPAIRMENT [None]
  - NEPHROGENIC DIABETES INSIPIDUS [None]
